FAERS Safety Report 6769986-4 (Version None)
Quarter: 2010Q2

REPORT INFORMATION
  Report Type: 
  Country: None (occurrence: None)
  Receive Date: 20100520
  Receipt Date: 20090618
  Transmission Date: 20101027
  Serious: Yes (Other)
  Sender: FDA-Public Use
  Company Number: 2008059942

PATIENT
  Age: 56 Year
  Sex: Female
  Weight: 82 kg

DRUGS (7)
  1. PROVERA [Suspect]
     Indication: HORMONE REPLACEMENT THERAPY
     Dosage: 2.5 MG, ORAL
     Route: 048
     Dates: start: 19890101, end: 19950101
  2. PREMARIN [Suspect]
     Indication: HORMONE REPLACEMENT THERAPY
     Dosage: 0.625 MG
     Dates: start: 19890101, end: 19950101
  3. COUMADIN [Concomitant]
  4. DIGOXIN [Concomitant]
  5. BETAPACE [Concomitant]
  6. LANOXIN [Concomitant]
  7. ADALAT [Concomitant]

REACTIONS (1)
  - BREAST CANCER FEMALE [None]
